FAERS Safety Report 7403578-9 (Version None)
Quarter: 2011Q2

REPORT INFORMATION
  Report Type: 
  Country: None (occurrence: None)
  Receive Date: 20110408
  Receipt Date: 20110404
  Transmission Date: 20111010
  Serious: Yes (Other)
  Sender: FDA-Public Use
  Company Number: US-PFIZER INC-2011074772

PATIENT
  Sex: Male
  Weight: 55.329 kg

DRUGS (1)
  1. IBUPROFEN (ADVIL) [Suspect]
     Dosage: 200 MG, UNK
     Route: 048
     Dates: start: 20100601

REACTIONS (2)
  - OVERDOSE [None]
  - ALANINE AMINOTRANSFERASE INCREASED [None]
